FAERS Safety Report 8971036 (Version 1)
Quarter: 2012Q4

REPORT INFORMATION
  Report Type: 
  Country: US (occurrence: US)
  Receive Date: 20121218
  Receipt Date: 20121218
  Transmission Date: 20130627
  Serious: No
  Sender: FDA-Public Use
  Company Number: US-BRISTOL-MYERS SQUIBB COMPANY-16473860

PATIENT
  Age: 46 Year
  Sex: Female

DRUGS (4)
  1. ABILIFY [Suspect]
     Indication: SCHIZOPHRENIA, PARANOID TYPE
     Route: 048
     Dates: start: 20120222, end: 20120307
  2. LANTUS [Concomitant]
     Dates: start: 20110620
  3. METFORMIN [Concomitant]
     Dates: start: 20110927
  4. COZAAR [Concomitant]
     Dosage: 1df:25 mg 1/2 tab
     Dates: start: 20110608

REACTIONS (2)
  - Vision blurred [Recovering/Resolving]
  - Myalgia [Recovered/Resolved]
